FAERS Safety Report 9062451 (Version 1)
Quarter: 2013Q1

REPORT INFORMATION
  Report Type: Spontaneous
  Country: CH (occurrence: CH)
  Receive Date: 20130213
  Receipt Date: 20130213
  Transmission Date: 20140127
  Serious: Yes (Life-Threatening)
  Sender: FDA-Public Use
  Company Number: CH-ROCHE-1186392

PATIENT
  Age: 70 Year
  Sex: Male
  Weight: 89 kg

DRUGS (8)
  1. MABTHERA [Suspect]
     Indication: HAIRY CELL LEUKAEMIA
     Route: 041
     Dates: start: 20121108, end: 20121129
  2. LITAK [Suspect]
     Indication: HAIRY CELL LEUKAEMIA
     Route: 058
     Dates: start: 20101108, end: 20101112
  3. TRAMADOL [Concomitant]
  4. OMEPRAZOL [Concomitant]
  5. SORTIS [Concomitant]
  6. VOTUM [Concomitant]
  7. LANTUS [Concomitant]
  8. NOVORAPID [Concomitant]

REACTIONS (2)
  - Progressive multifocal leukoencephalopathy [Unknown]
  - Visual acuity reduced [Unknown]
